FAERS Safety Report 25499290 (Version 1)
Quarter: 2025Q3

REPORT INFORMATION
  Report Type: Report from Study
  Country: US (occurrence: US)
  Receive Date: 20250701
  Receipt Date: 20250701
  Transmission Date: 20251021
  Serious: Yes (Hospitalization)
  Sender: ETON PHARMACEUTICALS, INC
  Company Number: US-ETON PHARMACEUTICALS, INC-2025ETO000262

PATIENT

DRUGS (3)
  1. ALKINDI SPRINKLE [Suspect]
     Active Substance: HYDROCORTISONE
     Indication: Adrenogenital syndrome
     Dosage: 0.5 MILLIGRAM, TID, 2.5 MILLIGRAMS IN THE MORNING, 2.5 MILLIGRAMS IN THE AFTERNOON, AND 2.5 MILLIGRA
     Route: 048
     Dates: start: 20220316
  2. ALKINDI SPRINKLE [Suspect]
     Active Substance: HYDROCORTISONE
     Dosage: 2 MILLIGRAM, TID, TID, 2.5 MILLIGRAMS IN THE MORNING, 2.5 MILLIGRAMS IN THE AFTERNOON, AND 2.5 MILLI
     Route: 048
     Dates: start: 20220316
  3. ALKINDI SPRINKLE [Suspect]
     Active Substance: HYDROCORTISONE
     Route: 048
     Dates: start: 20220316

REACTIONS (3)
  - Dehydration [Recovered/Resolved]
  - Ear infection [Recovered/Resolved]
  - Viral infection [Recovered/Resolved]
